FAERS Safety Report 7031619-X (Version None)
Quarter: 2010Q4

REPORT INFORMATION
  Report Type: 
  Country: None (occurrence: None)
  Receive Date: 20101006
  Receipt Date: 20101006
  Transmission Date: 20110411
  Serious: Yes (Other)
  Sender: FDA-Public Use
  Company Number: None

PATIENT

DRUGS (2)
  1. WALGREEN'S CHILDREN'S NON-ASPIRIN SUSPENSION LIQUID [Suspect]
     Dosage: 2 TSPS ORALLY
     Route: 048
     Dates: start: 20100927, end: 20100927
  2. WALGREEN'S BRAND OF MOTRIN [Concomitant]
     Dosage: TWO TEASPON DOSE

REACTIONS (2)
  - PRODUCT QUALITY ISSUE [None]
  - PRODUCT TASTE ABNORMAL [None]
